FAERS Safety Report 5723890-9 (Version None)
Quarter: 2008Q2

REPORT INFORMATION
  Report Type: 
  Country: None (occurrence: None)
  Receive Date: 20080428
  Receipt Date: 20080418
  Transmission Date: 20081010
  Serious: Yes (Other)
  Sender: FDA-Public Use
  Company Number: 2008AP000664

PATIENT
  Age: 70 Year
  Sex: Female

DRUGS (6)
  1. CARBIDOPA AND LEVODOPA [Suspect]
     Indication: PARKINSON'S DISEASE
     Dosage: 1 TAB; PO
     Route: 048
     Dates: start: 20080116, end: 20080126
  2. AMANTADINE HCL [Concomitant]
  3. ROPINIROLE HCL [Concomitant]
  4. HYDROCHLORIDE [Concomitant]
  5. CARBIDOPA AND LEVODOPA [Concomitant]
  6. SUSTAINED-RELEASE TABLETS [Concomitant]

REACTIONS (5)
  - CONDITION AGGRAVATED [None]
  - DRUG INEFFECTIVE [None]
  - HALO VISION [None]
  - PARKINSONISM [None]
  - VISUAL DISTURBANCE [None]
